FAERS Safety Report 6704504-8 (Version None)
Quarter: 2010Q2

REPORT INFORMATION
  Report Type: 
  Country: None (occurrence: None)
  Receive Date: 20100430
  Receipt Date: 20100419
  Transmission Date: 20101027
  Serious: Yes (Hospitalization)
  Sender: FDA-Public Use
  Company Number: PHHY2009JP49911

PATIENT
  Sex: Female

DRUGS (11)
  1. GLEEVEC [Suspect]
     Indication: GASTROINTESTINAL STROMAL TUMOUR
     Dosage: UNK MG, QD
     Route: 048
     Dates: start: 20090830, end: 20090912
  2. GLEEVEC [Suspect]
     Dosage: 400 MG DAILY
     Route: 048
     Dates: start: 20090927, end: 20090929
  3. JUZENTAIHOTO [Concomitant]
     Dosage: 7.5 G, UNK
     Route: 048
     Dates: start: 20080110, end: 20091024
  4. SAIREI-TO [Concomitant]
     Dosage: 9 G, UNK
     Route: 048
     Dates: start: 20081115, end: 20090828
  5. LANSOPRAZOLE [Concomitant]
     Dosage: 15 MG
     Route: 048
     Dates: start: 20091107
  6. ATARAX [Concomitant]
     Dosage: 25 MG
     Route: 048
     Dates: start: 20091110, end: 20091110
  7. EVAMYL [Concomitant]
     Dosage: 0.5MG, 1MG
     Route: 048
     Dates: start: 20091116
  8. SOLDEM 3A [Concomitant]
     Dosage: 1L
     Route: 042
     Dates: start: 20091025, end: 20091109
  9. SOLDEM 3 [Concomitant]
     Dosage: 500 ML
     Route: 042
     Dates: start: 20091110
  10. URSODESOXYCHOLIC ACID [Concomitant]
  11. PREDONINE [Concomitant]
     Dosage: 20 MG DAILY
     Dates: start: 20091107

REACTIONS (14)
  - ALANINE AMINOTRANSFERASE INCREASED [None]
  - ASPARTATE AMINOTRANSFERASE INCREASED [None]
  - BLOOD BILIRUBIN INCREASED [None]
  - BLOOD LACTATE DEHYDROGENASE INCREASED [None]
  - DECREASED APPETITE [None]
  - ECZEMA [None]
  - GASTRECTOMY [None]
  - HEPATECTOMY [None]
  - HEPATITIS ACUTE [None]
  - JAUNDICE [None]
  - LYMPHOCYTE COUNT DECREASED [None]
  - MALAISE [None]
  - MONOCYTE COUNT INCREASED [None]
  - PYREXIA [None]
